FAERS Safety Report 7600282-9 (Version None)
Quarter: 2011Q3

REPORT INFORMATION
  Report Type: 
  Country: None (occurrence: None)
  Receive Date: 20110708
  Receipt Date: 20110708
  Transmission Date: 20111222
  Serious: No
  Sender: FDA-Public Use
  Company Number: None

PATIENT
  Age: 24 Year
  Sex: Male
  Weight: 65 kg

DRUGS (1)
  1. PROPECIA [Suspect]
     Indication: ALOPECIA
     Dosage: 1 MG ALL DAYS BUCCAL
     Route: 002
     Dates: start: 20100710, end: 20110620

REACTIONS (4)
  - ERECTILE DYSFUNCTION [None]
  - LIBIDO DECREASED [None]
  - COGNITIVE DISORDER [None]
  - ORGASM ABNORMAL [None]
